FAERS Safety Report 7865172-5 (Version None)
Quarter: 2011Q4

REPORT INFORMATION
  Report Type: 
  Country: None (occurrence: None)
  Receive Date: 20111028
  Receipt Date: 20101026
  Transmission Date: 20120403
  Serious: No
  Sender: FDA-Public Use
  Company Number: US-GLAXOSMITHKLINE-A0888797A

PATIENT
  Age: 66 Year
  Sex: Female

DRUGS (4)
  1. NADOLOL [Concomitant]
  2. NASONEX [Concomitant]
  3. ADVAIR DISKUS 100/50 [Suspect]
     Indication: CHRONIC OBSTRUCTIVE PULMONARY DISEASE
     Dosage: 1PUFF TWICE PER DAY
     Route: 055
     Dates: start: 20100501
  4. SYNTHROID [Concomitant]

REACTIONS (4)
  - ASTHENIA [None]
  - BONE PAIN [None]
  - MALAISE [None]
  - MYALGIA [None]
